FAERS Safety Report 6673008-3 (Version None)
Quarter: 2010Q2

REPORT INFORMATION
  Report Type: 
  Country: None (occurrence: None)
  Receive Date: 20100408
  Receipt Date: 20100331
  Transmission Date: 20101027
  Serious: Yes (Hospitalization)
  Sender: FDA-Public Use
  Company Number: B0644531A

PATIENT
  Age: 55 Year
  Sex: Female

DRUGS (12)
  1. ARIXTRA [Suspect]
     Indication: DRUG USE FOR UNKNOWN INDICATION
     Dosage: 7.5MG PER DAY
     Route: 058
     Dates: start: 20100225, end: 20100307
  2. NEXIUM [Concomitant]
     Dosage: 40MG PER DAY
     Route: 065
  3. RAMIPRIL [Concomitant]
     Dosage: 1.25MG PER DAY
     Route: 065
  4. CLONAZEPAM [Concomitant]
     Route: 065
  5. METOCLOPRAMIDE HYDROCHLORIDE [Concomitant]
     Dosage: 15MG PER DAY
     Route: 065
  6. FUROSEMIDE [Concomitant]
     Dosage: 40MG PER DAY
     Route: 065
  7. SPIRONOLACTONE [Concomitant]
     Dosage: 50MG PER DAY
     Route: 065
     Dates: start: 20100225
  8. GRANOCYTE [Concomitant]
     Dosage: 34UNIT PER DAY
     Route: 058
     Dates: start: 20100301, end: 20100305
  9. NEORECORMON [Concomitant]
     Route: 065
     Dates: end: 20100215
  10. PERFALGAN [Concomitant]
     Dosage: 1G THREE TIMES PER DAY
     Route: 065
  11. ATARAX [Concomitant]
     Route: 065
  12. TRAMADOL HCL [Concomitant]
     Dosage: 400MG PER DAY
     Route: 065

REACTIONS (5)
  - CEREBRAL HAEMORRHAGE [None]
  - CONFUSIONAL STATE [None]
  - DISORIENTATION [None]
  - EPISTAXIS [None]
  - HYPERTENSION [None]
